FAERS Safety Report 11345097 (Version 1)
Quarter: 2015Q3

REPORT INFORMATION
  Report Type: Spontaneous
  Country: US (occurrence: None)
  Receive Date: 20150805
  Receipt Date: 20150805
  Transmission Date: 20151125
  Serious: Yes (Hospitalization)
  Sender: FDA-Public Use
  Company Number: None

PATIENT
  Age: 57 Year
  Sex: Male
  Weight: 86.64 kg

DRUGS (11)
  1. AMLODIPINE [Concomitant]
     Active Substance: AMLODIPINE BESYLATE
  2. URSODIOL. [Concomitant]
     Active Substance: URSODIOL
  3. HARVONI [Suspect]
     Active Substance: LEDIPASVIR\SOFOSBUVIR
     Indication: HEPATITIS C
     Dosage: 400/90 MG
     Route: 048
     Dates: start: 20141103, end: 20150420
  4. MORPHINE [Concomitant]
     Active Substance: MORPHINE
  5. CIPRO [Concomitant]
     Active Substance: CIPROFLOXACIN HYDROCHLORIDE
  6. MS CONTIN [Concomitant]
     Active Substance: MORPHINE SULFATE
  7. NEXAVAR [Concomitant]
     Active Substance: SORAFENIB
  8. LASIX [Concomitant]
     Active Substance: FUROSEMIDE
  9. PANTOPRAZOLE [Concomitant]
     Active Substance: PANTOPRAZOLE SODIUM
  10. ZOFRAN [Concomitant]
     Active Substance: ONDANSETRON HYDROCHLORIDE
  11. SPIRONOLACTONE. [Concomitant]
     Active Substance: SPIRONOLACTONE

REACTIONS (3)
  - Cholecystitis [None]
  - Dyspnoea [None]
  - Cholelithiasis [None]

NARRATIVE: CASE EVENT DATE: 20150224
